FAERS Safety Report 6719303-0 (Version None)
Quarter: 2010Q2

REPORT INFORMATION
  Report Type: 
  Country: None (occurrence: None)
  Receive Date: 20100511
  Receipt Date: 20100428
  Transmission Date: 20101027
  Serious: Yes (Death, Other)
  Sender: FDA-Public Use
  Company Number: PHHY2009JP43524

PATIENT
  Sex: Male
  Weight: 57 kg

DRUGS (6)
  1. ICL670A ICL+DISTAB [Suspect]
     Indication: IRON OVERLOAD
     Dosage: 1250 MG, QD
     Route: 048
     Dates: start: 20080709, end: 20090911
  2. NEORAL [Suspect]
     Indication: APLASTIC ANAEMIA
     Dosage: 50 MG, QD
     Route: 048
     Dates: start: 20080709
  3. COTRIM [Concomitant]
     Dosage: 1 DF, UNK
     Route: 048
     Dates: start: 20080709, end: 20090911
  4. DIFLUCAN [Concomitant]
     Dosage: 100 MG, UNK
     Route: 048
     Dates: start: 20080709, end: 20090911
  5. PRIMOBOLAN [Concomitant]
     Dosage: 20 MG, UNK
     Route: 048
     Dates: start: 20080709, end: 20090709
  6. RED BLOOD CELLS, LEUCOCYTE DEPLETED [Concomitant]
     Dosage: 4 UNITS DAILY EVERY TWO WEEKS
     Dates: start: 20090709, end: 20090909

REACTIONS (4)
  - HAEMOPTYSIS [None]
  - PULMONARY ALVEOLAR HAEMORRHAGE [None]
  - RENAL IMPAIRMENT [None]
  - RESPIRATORY DISORDER [None]
